FAERS Safety Report 9522042 (Version 2)
Quarter: 2013Q4

REPORT INFORMATION
  Report Type: Spontaneous
  Country: US (occurrence: US)
  Receive Date: 20130913
  Receipt Date: 20131021
  Transmission Date: 20140711
  Serious: No
  Sender: FDA-Public Use
  Company Number: US-009507513-1309USA002042

PATIENT
  Age: 55 Year
  Sex: Male

DRUGS (6)
  1. SINGULAIR [Suspect]
     Indication: ASTHMA
     Dosage: 10 MG, ONCE DAILY
     Route: 048
     Dates: start: 20130807
  2. LOVASTATIN [Concomitant]
  3. FLECAINIDE ACETATE [Concomitant]
  4. CARTIA XT [Concomitant]
  5. SYMBICORT [Concomitant]
  6. XOPENEX [Concomitant]

REACTIONS (1)
  - Palpitations [Recovered/Resolved]
